FAERS Safety Report 8799528 (Version 1)
Quarter: 2012Q4

REPORT INFORMATION
  Report Type: 
  Country: US (occurrence: US)
  Receive Date: 20120919
  Receipt Date: 20120919
  Transmission Date: 20130627
  Serious: No
  Sender: FDA-Public Use
  Company Number: US-PFIZER INC-2012228494

PATIENT
  Age: 84 Year
  Sex: Female
  Weight: 61.68 kg

DRUGS (3)
  1. DETROL LA [Suspect]
     Indication: HYPERTONIC BLADDER
     Dosage: 4 mg, 1x/day
     Route: 048
     Dates: start: 2011, end: 20120913
  2. PREDNISONE [Concomitant]
     Indication: HERPES ZOSTER
     Dosage: UNK
  3. WARFARIN [Concomitant]
     Indication: THROMBOSIS
     Dosage: UNK

REACTIONS (1)
  - Drug ineffective [Unknown]
